FAERS Safety Report 12767258 (Version 2)
Quarter: 2016Q3

REPORT INFORMATION
  Report Type: Spontaneous
  Country: US (occurrence: US)
  Receive Date: 20160921
  Receipt Date: 20160923
  Transmission Date: 20161109
  Serious: No
  Sender: FDA-Public Use
  Company Number: US-HORIZON-ACT-0220-2016

PATIENT
  Age: 34 Year
  Sex: Male

DRUGS (3)
  1. SPORANOX [Concomitant]
     Active Substance: ITRACONAZOLE
  2. ACTIMMUNE [Suspect]
     Active Substance: INTERFERON GAMMA-1B
     Indication: CHRONIC GRANULOMATOUS DISEASE
     Dosage: 100 ?G TIW
     Dates: start: 20140113
  3. BACTRIM [Concomitant]
     Active Substance: SULFAMETHOXAZOLE\TRIMETHOPRIM

REACTIONS (3)
  - Influenza like illness [Unknown]
  - Lack of injection site rotation [Unknown]
  - Chills [Unknown]
